FAERS Safety Report 5262215-2 (Version None)
Quarter: 2007Q1

REPORT INFORMATION
  Report Type: 
  Country: None (occurrence: None)
  Receive Date: 20070312
  Receipt Date: 20070302
  Transmission Date: 20070707
  Serious: Yes (Death)
  Sender: FDA-Public Use
  Company Number: US-BAYER-200711260GDS

PATIENT
  Age: 4 Week
  Sex: Male

DRUGS (1)
  1. PSEUDOEPHEDRIN [Suspect]
     Indication: DRUG USE FOR UNKNOWN INDICATION
     Route: 065

REACTIONS (1)
  - DRUG LEVEL ABOVE THERAPEUTIC [None]
